FAERS Safety Report 25600344 (Version 2)
Quarter: 2025Q3

REPORT INFORMATION
  Report Type: Spontaneous
  Country: JP (occurrence: JP)
  Receive Date: 20250724
  Receipt Date: 20250804
  Transmission Date: 20251021
  Serious: Yes (Other)
  Sender: MACLEODS
  Company Number: JP-MACLEODS PHARMA-MAC2025054224

PATIENT

DRUGS (3)
  1. METFORMIN [Suspect]
     Active Substance: METFORMIN HYDROCHLORIDE
     Indication: Type 2 diabetes mellitus
     Route: 065
  2. ROSUVASTATIN [Concomitant]
     Active Substance: ROSUVASTATIN
     Indication: Dyslipidaemia
     Route: 065
  3. Teneligliptin hydrobromide hydrate/canagliflozin hydrate [Concomitant]
     Indication: Dyslipidaemia
     Route: 065

REACTIONS (2)
  - Cutaneous sarcoidosis [Recovering/Resolving]
  - Photosensitivity reaction [Recovered/Resolved]
